FAERS Safety Report 20480125 (Version 1)
Quarter: 2022Q1

REPORT INFORMATION
  Report Type: Spontaneous
  Country: US (occurrence: None)
  Receive Date: 20220215
  Receipt Date: 20220215
  Transmission Date: 20220423
  Serious: Yes (Other)
  Sender: FDA-Public Use
  Company Number: None

PATIENT
  Age: 55 Year
  Weight: 101.25 kg

DRUGS (1)
  1. TRESIBA [Suspect]
     Active Substance: INSULIN DEGLUDEC
     Indication: Diabetes mellitus
     Dosage: OTHER QUANTITY : 120UNITS;?FREQUENCY : AT BEDTIME;?
     Route: 058
     Dates: start: 20211202, end: 20220215

REACTIONS (2)
  - Skin exfoliation [None]
  - Alopecia [None]

NARRATIVE: CASE EVENT DATE: 20220101
